FAERS Safety Report 5129946-6 (Version None)
Quarter: 2006Q4

REPORT INFORMATION
  Report Type: 
  Country: None (occurrence: None)
  Receive Date: 20061013
  Receipt Date: 20060926
  Transmission Date: 20070319
  Serious: Yes (Other)
  Sender: FDA-Public Use
  Company Number: DE200609006562

PATIENT
  Age: 46 Year
  Sex: Male
  Weight: 130 kg

DRUGS (8)
  1. CYMBALTA [Suspect]
     Indication: DEPRESSION
     Dosage: SEE IMAGE
     Route: 048
     Dates: end: 20060901
  2. CYMBALTA [Suspect]
     Indication: DEPRESSION
     Dosage: SEE IMAGE
     Route: 048
  3. CYMBALTA [Suspect]
     Indication: DEPRESSION
     Dosage: SEE IMAGE
     Route: 048
     Dates: start: 20060701
  4. ACCUZIDE (HYDROCHLOROTHIAZIDE, QUINAPRIL HYDROCHLORIDE) [Concomitant]
  5. OLMETEC/GFR/ (OLMESARTAN MEDOXOMIL) [Concomitant]
  6. L-THYROXIN (LEVOTHYROXIN SODIUM) [Concomitant]
  7. ASPIRIN [Concomitant]
  8. PRAVASTATIN [Concomitant]

REACTIONS (7)
  - COLITIS ULCERATIVE [None]
  - DIARRHOEA HAEMORRHAGIC [None]
  - HAEMOGLOBIN DECREASED [None]
  - NAUSEA [None]
  - PYREXIA [None]
  - RED BLOOD CELL SEDIMENTATION RATE INCREASED [None]
  - VIRAL INFECTION [None]
